FAERS Safety Report 10238890 (Version 1)
Quarter: 2014Q2

REPORT INFORMATION
  Report Type: Spontaneous
  Country: US (occurrence: None)
  Receive Date: 20140613
  Receipt Date: 20140613
  Transmission Date: 20141212
  Serious: Yes (Other)
  Sender: FDA-Public Use
  Company Number: None

PATIENT
  Age: 9 Year
  Sex: Male
  Weight: 35.38 kg

DRUGS (1)
  1. CONCERTA [Suspect]
     Indication: PRODUCT SUBSTITUTION ISSUE
     Dosage: 1 PILL ONCE DAILY TAKEN BY MOUTH
     Route: 048
     Dates: start: 20140501, end: 20140527

REACTIONS (2)
  - Drug ineffective [None]
  - Product substitution issue [None]
